FAERS Safety Report 19799018 (Version 1)
Quarter: 2021Q3

REPORT INFORMATION
  Report Type: Spontaneous
  Country: CA (occurrence: CA)
  Receive Date: 20210907
  Receipt Date: 20210907
  Transmission Date: 20211014
  Serious: Yes (Other)
  Sender: FDA-Public Use
  Company Number: CA-JUBILANT CADISTA PHARMACEUTICALS-2021JUB00257

PATIENT
  Age: 49 Year
  Sex: Female

DRUGS (3)
  1. BOTULINUM TOXIN [Suspect]
     Active Substance: BOTULINUM TOXIN NOS
     Indication: MUSCLE SPASTICITY
     Dosage: EVERY 3 MONTHS
     Route: 065
     Dates: start: 2013
  2. AMANTADINE HYDROCHLORIDE. [Suspect]
     Active Substance: AMANTADINE HYDROCHLORIDE
     Indication: MULTIPLE SCLEROSIS
     Dosage: 200 MG, 1X/DAY
     Route: 048
     Dates: start: 2012
  3. NATALIZUMAB [Concomitant]
     Active Substance: NATALIZUMAB
     Indication: MULTIPLE SCLEROSIS
     Dosage: UNK, 1X/MONTH
     Route: 042
     Dates: start: 2017

REACTIONS (3)
  - Corneal disorder [Recovering/Resolving]
  - Corneal decompensation [Recovering/Resolving]
  - Corneal oedema [Recovered/Resolved]
